FAERS Safety Report 4295691-2 (Version None)
Quarter: 2004Q1

REPORT INFORMATION
  Report Type: 
  Country: None (occurrence: None)
  Receive Date: 20040216
  Receipt Date: 20030810
  Transmission Date: 20041129
  Serious: No
  Sender: FDA-Public Use
  Company Number: US-GLAXOSMITHKLINE-A0421003A

PATIENT
  Sex: Male

DRUGS (2)
  1. PAXIL [Suspect]
     Indication: DEPRESSION
     Dates: start: 19950101
  2. KLONOPIN [Concomitant]
     Indication: ANXIETY
     Dates: start: 19950101

REACTIONS (7)
  - AFFECT LABILITY [None]
  - ANXIETY [None]
  - DRUG WITHDRAWAL SYNDROME [None]
  - HEADACHE [None]
  - HYPOAESTHESIA ORAL [None]
  - NERVOUSNESS [None]
  - PARAESTHESIA [None]
